FAERS Safety Report 7384261-5 (Version None)
Quarter: 2011Q1

REPORT INFORMATION
  Report Type: 
  Country: None (occurrence: None)
  Receive Date: 20110330
  Receipt Date: 20110324
  Transmission Date: 20110831
  Serious: Yes (Hospitalization, Other)
  Sender: FDA-Public Use
  Company Number: FR-GENZYME-FLUD-1000906

PATIENT
  Sex: Female

DRUGS (8)
  1. ENDOXAN [Suspect]
     Indication: B-CELL LYMPHOMA
     Dosage: 35 MG, UNK
     Route: 042
     Dates: start: 20100127, end: 20100610
  2. ACEBUTOLOL [Concomitant]
     Indication: PRODUCT USED FOR UNKNOWN INDICATION
     Dosage: 200 MG, UNK
  3. FLUDARA [Suspect]
     Indication: B-CELL LYMPHOMA
     Dosage: 3.5 MG, UNK
     Route: 042
     Dates: start: 20100127, end: 20100610
  4. TAHOR [Concomitant]
     Indication: PRODUCT USED FOR UNKNOWN INDICATION
     Dosage: 10 MG, UNK
  5. PARIET [Concomitant]
     Indication: PRODUCT USED FOR UNKNOWN INDICATION
     Dosage: 10 MG, UNK
  6. MABTHERA [Suspect]
     Indication: B-CELL LYMPHOMA
     Dosage: 630 MG, UNK
     Route: 042
     Dates: start: 20100126, end: 20100920
  7. SOLUPRED [Suspect]
     Indication: INFECTION
     Dosage: 20 MG, BID
     Route: 065
  8. RAMIPRIL [Concomitant]
     Indication: PRODUCT USED FOR UNKNOWN INDICATION
     Dosage: 5 MG, UNK

REACTIONS (3)
  - BONE MARROW DISORDER [None]
  - PNEUMOCYSTIS JIROVECI PNEUMONIA [None]
  - PANCYTOPENIA [None]
